FAERS Safety Report 10543358 (Version 1)
Quarter: 2014Q4

REPORT INFORMATION
  Report Type: Spontaneous
  Country: US (occurrence: None)
  Receive Date: 20141010
  Receipt Date: 20141010
  Transmission Date: 20150529
  Serious: Yes (Other)
  Sender: FDA-Public Use
  Company Number: 163-POMAL-14080748

PATIENT
  Age: 77 Year
  Sex: Male

DRUGS (9)
  1. OIL OF ORGENAO(ORIGANUM MINUTIFLORUM OIL) [Concomitant]
  2. DEXAMETHASONE. [Concomitant]
     Active Substance: DEXAMETHASONE
  3. METFORMIN [Concomitant]
     Active Substance: METFORMIN HYDROCHLORIDE
  4. OCUVITE [Concomitant]
     Active Substance: VITAMINS
  5. VITAMIN D (ERGOCALCIFEROL) [Concomitant]
     Active Substance: ERGOCALCIFEROL
  6. ACYCLOVIR. [Concomitant]
     Active Substance: ACYCLOVIR
  7. TURMERIC [Concomitant]
     Active Substance: TURMERIC
  8. POMALYST [Suspect]
     Active Substance: POMALIDOMIDE
     Indication: PLASMA CELL MYELOMA
     Dates: start: 201406
  9. TRIAMCINOLONE [Concomitant]
     Active Substance: TRIAMCINOLONE

REACTIONS (1)
  - Plasma cell myeloma [None]
